FAERS Safety Report 9046990 (Version 1)
Quarter: 2013Q1

REPORT INFORMATION
  Report Type: Spontaneous
  Country: US (occurrence: None)
  Receive Date: 20130129
  Receipt Date: 20130129
  Transmission Date: 20140127
  Serious: No
  Sender: FDA-Public Use
  Company Number: None

PATIENT
  Age: 58 Year
  Sex: Female
  Weight: 67.59 kg

DRUGS (1)
  1. AUBAGIO [Suspect]
     Route: 048
     Dates: start: 20130110, end: 20130124

REACTIONS (5)
  - Genital swelling [None]
  - Vaginal discharge [None]
  - Burning sensation [None]
  - Paraesthesia [None]
  - Breast enlargement [None]
